FAERS Safety Report 11145684 (Version 2)
Quarter: 2015Q2

REPORT INFORMATION
  Report Type: Spontaneous
  Country: GB (occurrence: GB)
  Receive Date: 20150528
  Receipt Date: 20150601
  Transmission Date: 20150821
  Serious: Yes (Hospitalization)
  Sender: FDA-Public Use
  Company Number: GB-PFIZER INC-2015174814

PATIENT
  Age: 68 Year
  Sex: Male
  Weight: 81 kg

DRUGS (4)
  1. EPIRUBICIN HCL [Suspect]
     Active Substance: EPIRUBICIN HYDROCHLORIDE
     Indication: GASTRIC CANCER
     Dosage: 95 MG, UNK
     Route: 042
     Dates: start: 20080507
  2. CISPLATIN. [Suspect]
     Active Substance: CISPLATIN
     Indication: GASTRIC CANCER
     Dosage: 114 MG, UNK
     Route: 042
     Dates: start: 20080507
  3. AVASTIN [Suspect]
     Active Substance: BEVACIZUMAB
     Indication: GASTRIC CANCER
     Dosage: 532 MG, UNK
     Route: 042
     Dates: start: 20080507
  4. XELODA [Suspect]
     Active Substance: CAPECITABINE
     Indication: GASTRIC CANCER
     Dosage: 2500 MG, DAILY (TREATMENT DELAYED)
     Route: 048
     Dates: start: 20080507, end: 20080512

REACTIONS (2)
  - Chest pain [Recovered/Resolved]
  - Abdominal pain [Recovered/Resolved]

NARRATIVE: CASE EVENT DATE: 20080511
